FAERS Safety Report 13507700 (Version 1)
Quarter: 2017Q2

REPORT INFORMATION
  Report Type: Other
  Country: US (occurrence: US)
  Receive Date: 20170503
  Receipt Date: 20170503
  Transmission Date: 20170830
  Serious: No
  Sender: FDA-Public Use
  Company Number: US-REGULIS-2020151

PATIENT
  Sex: Male

DRUGS (6)
  1. METHYLENE BLUE. [Suspect]
     Active Substance: METHYLENE BLUE
     Indication: METHAEMOGLOBINAEMIA
     Route: 042
  2. HYPERBARIC OXYGEN THERAPY [Concomitant]
     Route: 055
  3. OXYGEN. [Concomitant]
     Active Substance: OXYGEN
     Route: 055
  4. FRESH FROZEN PLASMA [Concomitant]
     Active Substance: HUMAN PLASMA
  5. PACKED RED BLOOD CELLS [Concomitant]
     Active Substance: HUMAN RED BLOOD CELL
  6. METHYLENE BLUE. [Suspect]
     Active Substance: METHYLENE BLUE
     Route: 042

REACTIONS (1)
  - Drug ineffective [Recovered/Resolved]
